FAERS Safety Report 16620066 (Version 1)
Quarter: 2019Q3

REPORT INFORMATION
  Report Type: Spontaneous
  Country: US (occurrence: US)
  Receive Date: 20190723
  Receipt Date: 20190723
  Transmission Date: 20191004
  Serious: No
  Sender: FDA-Public Use
  Company Number: US-IGSA-SR10007204

PATIENT
  Age: 46 Year
  Sex: Female
  Weight: 73.6 kg

DRUGS (2)
  1. GAMUNEX-C [Suspect]
     Active Substance: HUMAN IMMUNOGLOBULIN G
     Dosage: 2.5 G, Q.WK.
     Route: 058
  2. GAMUNEX-C [Suspect]
     Active Substance: HUMAN IMMUNOGLOBULIN G
     Indication: IMMUNODEFICIENCY
     Dosage: 5 G, Q.WK.
     Route: 058

REACTIONS (4)
  - Myalgia [Recovered/Resolved]
  - Influenza like illness [None]
  - Arthralgia [Recovered/Resolved]
  - Epstein-Barr virus antibody positive [Recovered/Resolved]

NARRATIVE: CASE EVENT DATE: 201808
